FAERS Safety Report 8905540 (Version 1)
Quarter: 2012Q4

REPORT INFORMATION
  Report Type: 
  Country: CA (occurrence: CA)
  Receive Date: 20121113
  Receipt Date: 20121113
  Transmission Date: 20130627
  Serious: Yes (Other)
  Sender: FDA-Public Use
  Company Number: CA-PURDUE-USA-2011-0079575

PATIENT
  Age: 93 Year
  Sex: Male

DRUGS (2)
  1. TRAMADOL (SIMILAR TO NDA 21-745) [Suspect]
     Indication: PAIN MANAGEMENT
     Dosage: 100 mg, UNK
     Route: 048
  2. LAXATIVES [Concomitant]

REACTIONS (3)
  - Renal impairment [Unknown]
  - Drug clearance decreased [Unknown]
  - Hallucination [Recovered/Resolved]
